FAERS Safety Report 19101157 (Version 3)
Quarter: 2021Q2

REPORT INFORMATION
  Report Type: Report from Study
  Country: US (occurrence: US)
  Receive Date: 20210407
  Receipt Date: 20210621
  Transmission Date: 20210717
  Serious: Yes (Other)
  Sender: FDA-Public Use
  Company Number: NVSC2021US071863

PATIENT
  Age: 85 Year
  Sex: Female

DRUGS (7)
  1. BEOVU [Suspect]
     Active Substance: BROLUCIZUMAB-DBLL
     Dosage: UNK
     Route: 031
     Dates: start: 20210125
  2. BEOVU [Suspect]
     Active Substance: BROLUCIZUMAB-DBLL
     Dosage: UNK
     Route: 031
  3. BEOVU [Suspect]
     Active Substance: BROLUCIZUMAB-DBLL
     Dosage: UNK
     Route: 031
  4. BEOVU [Suspect]
     Active Substance: BROLUCIZUMAB-DBLL
     Indication: NEOVASCULAR AGE-RELATED MACULAR DEGENERATION
     Dosage: UNK (LEFT EYE)
     Route: 031
     Dates: start: 20200320
  5. BEOVU [Suspect]
     Active Substance: BROLUCIZUMAB-DBLL
     Dosage: UNK
     Route: 031
  6. BEOVU [Suspect]
     Active Substance: BROLUCIZUMAB-DBLL
     Dosage: UNK
     Route: 031
  7. BEOVU [Suspect]
     Active Substance: BROLUCIZUMAB-DBLL
     Dosage: UNK
     Route: 031

REACTIONS (11)
  - Liquid product physical issue [Unknown]
  - Vision blurred [Unknown]
  - Eye infection viral [Unknown]
  - Uveitis [Recovered/Resolved with Sequelae]
  - Ocular hyperaemia [Unknown]
  - Blindness unilateral [Unknown]
  - Eye irritation [Unknown]
  - Eye pruritus [Unknown]
  - Eye pain [Unknown]
  - Lacrimation increased [Unknown]
  - Eye inflammation [Unknown]

NARRATIVE: CASE EVENT DATE: 20210126
